FAERS Safety Report 6849328-6 (Version None)
Quarter: 2010Q3

REPORT INFORMATION
  Report Type: 
  Country: None (occurrence: None)
  Receive Date: 20100716
  Receipt Date: 20070927
  Transmission Date: 20110219
  Serious: No
  Sender: FDA-Public Use
  Company Number: US-PFIZER INC-2007082734

PATIENT
  Sex: Female
  Weight: 77.1 kg

DRUGS (8)
  1. CHANTIX [Suspect]
     Indication: SMOKING CESSATION THERAPY
     Dates: start: 20070901
  2. PLAVIX [Concomitant]
  3. ACETYLSALICYLIC ACID [Concomitant]
  4. NEXIUM [Concomitant]
  5. NITROGLYCERIN [Concomitant]
  6. IMDUR [Concomitant]
  7. ZOCOR [Concomitant]
     Indication: BLOOD CHOLESTEROL INCREASED
  8. DYAZIDE [Concomitant]

REACTIONS (1)
  - NAUSEA [None]
